FAERS Safety Report 21205800 (Version 1)
Quarter: 2022Q3

REPORT INFORMATION
  Report Type: Report from Study
  Country: PL (occurrence: PL)
  Receive Date: 20220812
  Receipt Date: 20220812
  Transmission Date: 20221027
  Serious: Yes (Hospitalization, Other)
  Sender: FDA-Public Use
  Company Number: PL-TAKEDA-2022TUS054204

PATIENT
  Age: 46 Year
  Sex: Female
  Weight: 43 kg

DRUGS (2)
  1. VEDOLIZUMAB [Suspect]
     Active Substance: VEDOLIZUMAB
     Indication: Crohn^s disease
     Dosage: 300 MILLIGRAM
     Route: 042
     Dates: start: 20210412, end: 20211210
  2. PENTASA [Concomitant]
     Active Substance: MESALAMINE
     Indication: Crohn^s disease
     Dosage: 1000 MILLIGRAM, TID
     Route: 048
     Dates: start: 2005

REACTIONS (3)
  - Paraspinal abscess [Recovering/Resolving]
  - Enterococcal infection [Recovering/Resolving]
  - Vascular device infection [Recovering/Resolving]

NARRATIVE: CASE EVENT DATE: 20220101
